FAERS Safety Report 19589996 (Version 2)
Quarter: 2021Q3

REPORT INFORMATION
  Report Type: Spontaneous
  Country: US (occurrence: US)
  Receive Date: 20210721
  Receipt Date: 20210816
  Transmission Date: 20211014
  Serious: No
  Sender: FDA-Public Use
  Company Number: US-SA-2021SA233597

PATIENT
  Age: 15 Year
  Sex: Male

DRUGS (1)
  1. DUPIXENT [Suspect]
     Active Substance: DUPILUMAB
     Indication: DERMATITIS ATOPIC
     Dosage: 200 MG, QOW (200 MG/2ML)
     Route: 058
     Dates: start: 20201208

REACTIONS (6)
  - Photosensitivity reaction [Unknown]
  - Product use issue [Unknown]
  - Rash macular [Unknown]
  - Therapeutic product effect decreased [Unknown]
  - Pigmentation disorder [Unknown]
  - Rash papular [Unknown]

NARRATIVE: CASE EVENT DATE: 202012
